FAERS Safety Report 17146751 (Version 4)
Quarter: 2020Q1

REPORT INFORMATION
  Report Type: Spontaneous
  Country: US (occurrence: US)
  Receive Date: 20191212
  Receipt Date: 20200214
  Transmission Date: 20200409
  Serious: Yes (Disabling, Other)
  Sender: FDA-Public Use
  Company Number: US-MERZ PHARMACEUTICALS GMBH-19-05067

PATIENT
  Age: 62 Year
  Sex: Female
  Weight: 56.75 kg

DRUGS (2)
  1. ASCLERA [Suspect]
     Active Substance: POLIDOCANOL
     Indication: SCLEROTHERAPY
     Route: 042
     Dates: start: 20191121, end: 20191121
  2. ASCLERA [Suspect]
     Active Substance: POLIDOCANOL
     Route: 042
     Dates: start: 20191121, end: 20191121

REACTIONS (3)
  - Nausea [Recovering/Resolving]
  - Meniere^s disease [Recovering/Resolving]
  - Vertigo [Recovering/Resolving]

NARRATIVE: CASE EVENT DATE: 201911
